FAERS Safety Report 9460760 (Version 2)
Quarter: 2013Q4

REPORT INFORMATION
  Report Type: Spontaneous
  Country: US (occurrence: US)
  Receive Date: 20130815
  Receipt Date: 20131004
  Transmission Date: 20140711
  Serious: Yes (Hospitalization)
  Sender: FDA-Public Use
  Company Number: US-GLAXOSMITHKLINE-A1037700A

PATIENT
  Sex: Male

DRUGS (3)
  1. LAMICTAL [Suspect]
     Indication: PRODUCT USED FOR UNKNOWN INDICATION
     Route: 065
     Dates: start: 20081229
  2. ADVAIR [Suspect]
     Indication: EMPHYSEMA
     Route: 055
  3. CLOZARIL [Concomitant]
     Indication: SCHIZOAFFECTIVE DISORDER

REACTIONS (11)
  - Schizoaffective disorder [Unknown]
  - Bipolar disorder [Unknown]
  - Myocardial infarction [Unknown]
  - Emphysema [Unknown]
  - Pulmonary mass [Unknown]
  - Cough [Unknown]
  - Wheezing [Unknown]
  - Mania [Unknown]
  - Delusion of grandeur [Unknown]
  - Logorrhoea [Unknown]
  - Adverse drug reaction [Unknown]
